FAERS Safety Report 10143739 (Version 1)
Quarter: 2014Q2

REPORT INFORMATION
  Report Type: Spontaneous
  Country: US (occurrence: US)
  Receive Date: 20140430
  Receipt Date: 20140430
  Transmission Date: 20141212
  Serious: Yes (Other)
  Sender: FDA-Public Use
  Company Number: US-ACTAVIS-2014-08381

PATIENT
  Age: 39 Year
  Sex: Male

DRUGS (2)
  1. ANDRODERM (WATSON LABORATORIES) [Suspect]
     Indication: BLOOD TESTOSTERONE DECREASED
     Dosage: ^AS PRESCRIBED AND IN A  FORESEEABLE MANNER^
     Route: 065
  2. DEPO TESTOSTERONE [Suspect]
     Indication: BLOOD TESTOSTERONE DECREASED
     Dosage: ^AS PRESCRIBED AND IN A  FORESEEABLE MANNER^
     Route: 065

REACTIONS (1)
  - Myocardial infarction [Not Recovered/Not Resolved]
